FAERS Safety Report 8387327-6 (Version None)
Quarter: 2012Q2

REPORT INFORMATION
  Report Type: 
  Country: None (occurrence: None)
  Receive Date: 20120525
  Receipt Date: 20120522
  Transmission Date: 20120825
  Serious: Yes (Other)
  Sender: FDA-Public Use
  Company Number: CA-ROCHE-1071937

PATIENT
  Sex: Female
  Weight: 70.37 kg

DRUGS (10)
  1. PREDNISONE TAB [Concomitant]
  2. TYLENOL [Concomitant]
  3. METHYLPREDNISOLONE [Concomitant]
     Indication: PREMEDICATION
     Route: 042
     Dates: start: 20120416, end: 20120416
  4. ARTHROTEC [Concomitant]
  5. FOLIC ACID [Concomitant]
  6. MABTHERA [Suspect]
     Indication: RHEUMATOID ARTHRITIS
     Route: 042
     Dates: start: 20120402
  7. RABEPRAZOLE SODIUM [Concomitant]
  8. DIPHENHYDRAMINE HCL [Concomitant]
     Indication: PREMEDICATION
     Route: 048
     Dates: start: 20120416, end: 20120416
  9. METHOTREXATE [Concomitant]
  10. ACETAMINOPHEN [Concomitant]
     Indication: PREMEDICATION
     Route: 048
     Dates: start: 20120416, end: 20120416

REACTIONS (1)
  - DIABETES MELLITUS [None]
